FAERS Safety Report 4478430-1 (Version None)
Quarter: 2004Q4

REPORT INFORMATION
  Report Type: 
  Country: None (occurrence: None)
  Receive Date: 20041019
  Receipt Date: 20041011
  Transmission Date: 20050328
  Serious: Yes (Other)
  Sender: FDA-Public Use
  Company Number: US-JNJFOC-20041003717

PATIENT
  Age: 11 Year
  Sex: Female

DRUGS (2)
  1. RISPERDAL [Suspect]
     Route: 049
     Dates: end: 20041009
  2. STRATTERA [Concomitant]
     Dates: start: 20041009

REACTIONS (1)
  - ELECTROCARDIOGRAM QT PROLONGED [None]
